FAERS Safety Report 6151319-8 (Version None)
Quarter: 2009Q2

REPORT INFORMATION
  Report Type: 
  Country: None (occurrence: None)
  Receive Date: 20090410
  Receipt Date: 20051222
  Transmission Date: 20091009
  Serious: Yes (Hospitalization)
  Sender: FDA-Public Use
  Company Number: PT-PFIZER INC-2009193946

PATIENT

DRUGS (1)
  1. CELECOXIB [Suspect]
     Indication: POLYP
     Dosage: 400 MG, 1X/DAY
     Route: 048
     Dates: start: 20010815, end: 20041220

REACTIONS (1)
  - SLEEP APNOEA SYNDROME [None]
